FAERS Safety Report 4920496-6 (Version None)
Quarter: 2006Q1

REPORT INFORMATION
  Report Type: 
  Country: None (occurrence: None)
  Receive Date: 20060223
  Receipt Date: 20051031
  Transmission Date: 20060701
  Serious: Yes (Hospitalization, Other)
  Sender: FDA-Public Use
  Company Number: US-MERCK-0511USA00260

PATIENT
  Age: 44 Year
  Sex: Female
  Weight: 100 kg

DRUGS (10)
  1. VIOXX [Suspect]
     Indication: ARTHRITIS
     Route: 048
     Dates: start: 20020128, end: 20021230
  2. VIOXX [Suspect]
     Indication: PAIN
     Route: 048
     Dates: start: 20020128, end: 20021230
  3. IBUPROFEN [Concomitant]
     Route: 065
  4. LIPITOR [Concomitant]
     Route: 065
  5. NITROGLYCERIN [Concomitant]
     Indication: CHEST PAIN
     Route: 065
  6. PLAVIX [Concomitant]
     Route: 065
  7. TRIAMTERENE [Concomitant]
     Indication: HYPERTENSION
     Route: 065
  8. TRIAMTERENE [Concomitant]
     Indication: OEDEMA PERIPHERAL
     Route: 065
  9. TRICOR [Concomitant]
     Route: 065
  10. ZETIA [Concomitant]
     Indication: BLOOD CHOLESTEROL INCREASED
     Route: 048

REACTIONS (5)
  - ANGINA PECTORIS [None]
  - CEREBROVASCULAR ACCIDENT [None]
  - FACIAL PALSY [None]
  - MYOCARDIAL INFARCTION [None]
  - TRANSIENT ISCHAEMIC ATTACK [None]
